FAERS Safety Report 6794535-4 (Version None)
Quarter: 2010Q2

REPORT INFORMATION
  Report Type: 
  Country: None (occurrence: None)
  Receive Date: 20100625
  Receipt Date: 20100510
  Transmission Date: 20101027
  Serious: No
  Sender: FDA-Public Use
  Company Number: A0848052A

PATIENT
  Age: 57 Year
  Sex: Female

DRUGS (3)
  1. VENTOLIN [Suspect]
     Indication: ASTHMA
     Dosage: 2PUFF PER DAY
     Route: 055
     Dates: start: 20060721
  2. OMEPRAZOLE [Concomitant]
  3. WARFARIN SODIUM [Concomitant]

REACTIONS (3)
  - DYSPHONIA [None]
  - FOREIGN BODY [None]
  - PRODUCT QUALITY ISSUE [None]
